FAERS Safety Report 8017140-0 (Version None)
Quarter: 2012Q1

REPORT INFORMATION
  Report Type: 
  Country: None (occurrence: None)
  Receive Date: 20120102
  Receipt Date: 20111220
  Transmission Date: 20120608
  Serious: Yes (Hospitalization, Other)
  Sender: FDA-Public Use
  Company Number: JP-ROCHE-1025683

PATIENT
  Age: 60 Year
  Sex: Male
  Weight: 61 kg

DRUGS (3)
  1. MYCOPHENOLATE MOFETIL (CELLCEPT) [Suspect]
     Indication: PROPHYLAXIS AGAINST TRANSPLANT REJECTION
     Dosage: DOSAGE IS UNCERTAIN.
     Route: 048
  2. ADRENAL HORMONE PREPARATION (UNK INGREDIENTS) [Concomitant]
  3. MYCOPHENOLATE MOFETIL (CELLCEPT) [Suspect]
     Dosage: DOSAGE IS UNCERTAIN.
     Route: 048

REACTIONS (2)
  - OSTEOMYELITIS [None]
  - APLASIA PURE RED CELL [None]
